FAERS Safety Report 11779389 (Version 2)
Quarter: 2015Q4

REPORT INFORMATION
  Report Type: Spontaneous
  Country: JP (occurrence: JP)
  Receive Date: 20151125
  Receipt Date: 20151201
  Transmission Date: 20160304
  Serious: Yes (Other)
  Sender: FDA-Public Use
  Company Number: JP-SA-2015SA188814

PATIENT
  Age: 59 Year
  Sex: Male

DRUGS (2)
  1. DOCETAXEL. [Suspect]
     Active Substance: DOCETAXEL
     Indication: SKIN ANGIOSARCOMA
     Route: 065
  2. DOCETAXEL. [Suspect]
     Active Substance: DOCETAXEL
     Indication: SKIN ANGIOSARCOMA
     Route: 065

REACTIONS (5)
  - Localised oedema [Unknown]
  - Scrotal oedema [Unknown]
  - Pleural effusion [Unknown]
  - Systemic sclerosis [Unknown]
  - Oedema peripheral [Unknown]
